FAERS Safety Report 6139801-0 (Version None)
Quarter: 2009Q2

REPORT INFORMATION
  Report Type: 
  Country: None (occurrence: None)
  Receive Date: 20090401
  Receipt Date: 20090326
  Transmission Date: 20091009
  Serious: Yes (Hospitalization)
  Sender: FDA-Public Use
  Company Number: B0564671A

PATIENT
  Sex: Male

DRUGS (2)
  1. ZYBAN [Suspect]
     Indication: SMOKING CESSATION THERAPY
     Dosage: 150MG TWICE PER DAY
     Route: 048
     Dates: start: 20090211, end: 20090302
  2. NEXIUM [Concomitant]
     Route: 048
     Dates: start: 20030101

REACTIONS (6)
  - HEART RATE INCREASED [None]
  - IMMUNE SYSTEM DISORDER [None]
  - JOINT SWELLING [None]
  - PRURITUS [None]
  - SWELLING [None]
  - URTICARIA [None]
